FAERS Safety Report 12666787 (Version 1)
Quarter: 2016Q3

REPORT INFORMATION
  Report Type: Spontaneous
  Country: US (occurrence: US)
  Receive Date: 20160819
  Receipt Date: 20160819
  Transmission Date: 20161109
  Serious: No
  Sender: FDA-Public Use
  Company Number: US-BEH-2016072461

PATIENT
  Sex: Male
  Weight: 97.51 kg

DRUGS (22)
  1. LUTEIN                             /01638501/ [Concomitant]
     Active Substance: LUTEIN
  2. DOCUSATE SODIUM. [Concomitant]
     Active Substance: DOCUSATE SODIUM
  3. DIPHENHYDRAMINE. [Concomitant]
     Active Substance: DIPHENHYDRAMINE
  4. METHOCARBAMOL. [Concomitant]
     Active Substance: METHOCARBAMOL
  5. BETAMETHASONE DIPROPRIONATE [Concomitant]
  6. MULTIVITAMIN                       /00097801/ [Concomitant]
     Active Substance: VITAMINS
  7. TAMSULOSIN [Concomitant]
     Active Substance: TAMSULOSIN
  8. HIZENTRA [Suspect]
     Active Substance: HUMAN IMMUNOGLOBULIN G
     Indication: IMMUNODEFICIENCY COMMON VARIABLE
     Dosage: 13 G, QW
     Route: 058
     Dates: start: 20160302
  9. DEXAMETHASONE. [Concomitant]
     Active Substance: DEXAMETHASONE
  10. PREDNISONE. [Concomitant]
     Active Substance: PREDNISONE
  11. OMEPRAZOLE. [Concomitant]
     Active Substance: OMEPRAZOLE
  12. PROMETHAZINE [Concomitant]
     Active Substance: PROMETHAZINE\PROMETHAZINE HYDROCHLORIDE
  13. ALBUTEROL                          /00139501/ [Concomitant]
     Active Substance: ALBUTEROL
  14. STOOL SOFTENER [Concomitant]
     Active Substance: DOCUSATE CALCIUM
  15. FLUCONAZOLE. [Concomitant]
     Active Substance: FLUCONAZOLE
  16. NASONEX [Concomitant]
     Active Substance: MOMETASONE FUROATE
  17. VESICARE [Concomitant]
     Active Substance: SOLIFENACIN SUCCINATE
  18. PRILOSEC [Concomitant]
     Active Substance: OMEPRAZOLE MAGNESIUM
  19. CEFUROXIME. [Concomitant]
     Active Substance: CEFUROXIME
  20. LEVOFLOXACIN. [Concomitant]
     Active Substance: LEVOFLOXACIN
  21. EPIPEN [Concomitant]
     Active Substance: EPINEPHRINE
  22. FLUTICASONE [Concomitant]
     Active Substance: FLUTICASONE\FLUTICASONE PROPIONATE

REACTIONS (2)
  - Rash [Unknown]
  - Urticaria [Unknown]
